FAERS Safety Report 4456972-2 (Version None)
Quarter: 2004Q3

REPORT INFORMATION
  Report Type: 
  Country: None (occurrence: None)
  Receive Date: 20040921
  Receipt Date: 20040906
  Transmission Date: 20050211
  Serious: Yes (Hospitalization)
  Sender: FDA-Public Use
  Company Number: 2004GB02150

PATIENT
  Age: 59 Year
  Sex: Male

DRUGS (7)
  1. ESOMEPRAZOLE [Suspect]
     Indication: GASTROINTESTINAL ULCER
     Dosage: 20 MG QD PO
     Route: 048
     Dates: start: 20040401, end: 20040715
  2. ESOMEPRAZOLE [Suspect]
     Indication: NAUSEA
     Dosage: 20 MG QD PO
     Route: 048
     Dates: start: 20040401, end: 20040715
  3. ESOMEPRAZOLE [Suspect]
     Indication: PROPHYLAXIS
     Dosage: 20 MG QD PO
     Route: 048
     Dates: start: 20040401, end: 20040715
  4. ESOMEPRAZOLE [Suspect]
     Indication: VOMITING
     Dosage: 20 MG QD PO
     Route: 048
     Dates: start: 20040401, end: 20040715
  5. DEXAMETHASONE [Concomitant]
  6. CO-CODAMOL [Concomitant]
  7. THIAMINE [Concomitant]

REACTIONS (1)
  - JAUNDICE CHOLESTATIC [None]
